FAERS Safety Report 4477717-6 (Version None)
Quarter: 2004Q4

REPORT INFORMATION
  Report Type: 
  Country: None (occurrence: None)
  Receive Date: 20041014
  Receipt Date: 20040929
  Transmission Date: 20050328
  Serious: Yes (Hospitalization)
  Sender: FDA-Public Use
  Company Number: 205491

PATIENT
  Age: 73 Year
  Sex: Female
  Weight: 68.0396 kg

DRUGS (2)
  1. AVONEX [Suspect]
     Indication: MULTIPLE SCLEROSIS
     Dosage: 30 MCG QW IM
     Route: 030
     Dates: start: 19960101, end: 20010101
  2. AVONEX [Suspect]
     Indication: MULTIPLE SCLEROSIS
     Dosage: 30 MCG Q5D IM
     Route: 030
     Dates: start: 20010101, end: 20040901

REACTIONS (4)
  - METASTASES TO LUNG [None]
  - PANCREATIC CARCINOMA [None]
  - PULMONARY OEDEMA [None]
  - RENAL NEOPLASM [None]
